FAERS Safety Report 7209786-4 (Version None)
Quarter: 2011Q1

REPORT INFORMATION
  Report Type: 
  Country: None (occurrence: None)
  Receive Date: 20110104
  Receipt Date: 20101229
  Transmission Date: 20110831
  Serious: Yes (Death, Hospitalization)
  Sender: FDA-Public Use
  Company Number: BE-ABBOTT-10P-013-0694163-00

PATIENT
  Sex: Male

DRUGS (1)
  1. LUCRIN DEPOT 11.25 MG [Suspect]
     Indication: PRODUCT USED FOR UNKNOWN INDICATION
     Dates: start: 20100322

REACTIONS (1)
  - PNEUMONIA [None]
